FAERS Safety Report 25900572 (Version 3)
Quarter: 2025Q4

REPORT INFORMATION
  Report Type: Report from Study
  Country: US (occurrence: US)
  Receive Date: 20251009
  Receipt Date: 20251210
  Transmission Date: 20260118
  Serious: Yes (Other)
  Sender: PFIZER
  Company Number: US-PFIZER INC-PV202500119063

PATIENT
  Age: 66 Year
  Sex: Male

DRUGS (7)
  1. BRAFTOVI [Suspect]
     Active Substance: ENCORAFENIB
     Indication: Colon cancer
     Dosage: 75 MG 1 CAPSULE DAILY FOR 1 WEEK
     Route: 048
     Dates: start: 20250925, end: 20251002
  2. BRAFTOVI [Suspect]
     Active Substance: ENCORAFENIB
     Indication: Malignant melanoma
     Dosage: 75MG 1 CAPSULE IN THE MORNING AND 1 CAPSULE IN THE EVENING
     Route: 048
     Dates: start: 20251003
  3. BRAFTOVI [Suspect]
     Active Substance: ENCORAFENIB
     Dosage: 150 MG, 1X/DAY
     Route: 048
  4. BRAFTOVI [Suspect]
     Active Substance: ENCORAFENIB
     Dosage: 75MG 1 CAPSULE IN THE MORNING AND 1 CAPSULE IN THE EVENING
     Dates: start: 20251021
  5. BRAFTOVI [Suspect]
     Active Substance: ENCORAFENIB
     Dosage: 75 MG, 3 CAPSULES DAILY
     Route: 048
  6. BRAFTOVI [Suspect]
     Active Substance: ENCORAFENIB
     Dosage: 75 MG, 4 CAPSULES DAILY
     Route: 048
     Dates: start: 202511
  7. NYVEPRIA [Concomitant]
     Active Substance: PEGFILGRASTIM-APGF
     Dosage: UNK, PFS

REACTIONS (6)
  - Neuropathy peripheral [Not Recovered/Not Resolved]
  - Rash [Recovering/Resolving]
  - Skin discolouration [Unknown]
  - Fatigue [Not Recovered/Not Resolved]
  - Dry mouth [Not Recovered/Not Resolved]
  - Off label use [Unknown]

NARRATIVE: CASE EVENT DATE: 20250101
